FAERS Safety Report 18958345 (Version 1)
Quarter: 2021Q1

REPORT INFORMATION
  Report Type: Report from Study
  Country: US (occurrence: US)
  Receive Date: 20210302
  Receipt Date: 20210302
  Transmission Date: 20210420
  Serious: Yes (Life-Threatening, Hospitalization, Disabling, Other)
  Sender: FDA-Public Use
  Company Number: US-JNJFOC-20210300057

PATIENT
  Age: 62 Year
  Sex: Male
  Weight: 134 kg

DRUGS (3)
  1. REMDESIVIR. [Suspect]
     Active Substance: REMDESIVIR
     Indication: PRODUCT USED FOR UNKNOWN INDICATION
     Dosage: FREQUENCY: ONCE?THIS IS LOADING DOSE
     Route: 042
     Dates: start: 20201215
  2. REMICADE [Suspect]
     Active Substance: INFLIXIMAB
     Indication: PRODUCT USED FOR UNKNOWN INDICATION
     Dosage: FREQUENCY: ONCE
     Route: 042
     Dates: start: 20201217, end: 20201217
  3. REMDESIVIR. [Suspect]
     Active Substance: REMDESIVIR
     Dosage: FREQUENCY: ONCE?THIS IS MAINTENANCE DOSE
     Route: 042
     Dates: start: 20201216

REACTIONS (4)
  - Bacteraemia [Not Recovered/Not Resolved]
  - Staphylococcal infection [Not Recovered/Not Resolved]
  - Extradural abscess [Not Recovered/Not Resolved]
  - Osteomyelitis [Not Recovered/Not Resolved]

NARRATIVE: CASE EVENT DATE: 20210213
